FAERS Safety Report 6486666-3 (Version None)
Quarter: 2009Q4

REPORT INFORMATION
  Report Type: 
  Country: None (occurrence: None)
  Receive Date: 20091210
  Receipt Date: 20091201
  Transmission Date: 20100525
  Serious: Yes (Death, Hospitalization)
  Sender: FDA-Public Use
  Company Number: US-ROCHE-670052

PATIENT
  Sex: Male
  Weight: 56.7 kg

DRUGS (1)
  1. CAPECITABINE [Suspect]
     Indication: METASTASES TO LARGE INTESTINE
     Route: 048
     Dates: start: 20091101, end: 20091110

REACTIONS (2)
  - CLOSTRIDIAL INFECTION [None]
  - MALIGNANT NEOPLASM PROGRESSION [None]
